FAERS Safety Report 14099049 (Version 2)
Quarter: 2017Q4

REPORT INFORMATION
  Report Type: Report from Study
  Country: US (occurrence: US)
  Receive Date: 20171017
  Receipt Date: 20171026
  Transmission Date: 20180321
  Serious: Yes (Hospitalization, Other)
  Sender: FDA-Public Use
  Company Number: US-GILEAD-2017-0298923

PATIENT
  Age: 22 Year
  Sex: Female

DRUGS (19)
  1. OMEPRAZOLE. [Concomitant]
     Active Substance: OMEPRAZOLE
  2. MYFORTIC [Concomitant]
     Active Substance: MYCOPHENOLATE SODIUM
  3. CODEINE [Concomitant]
     Active Substance: CODEINE
  4. SILDENAFIL. [Concomitant]
     Active Substance: SILDENAFIL
  5. PREDNISONE. [Concomitant]
     Active Substance: PREDNISONE
  6. PLAQUENIL                          /00072602/ [Concomitant]
     Active Substance: HYDROXYCHLOROQUINE DIPHOSPHATE
  7. AMBRISENTAN [Suspect]
     Active Substance: AMBRISENTAN
     Indication: PULMONARY ARTERIAL HYPERTENSION
     Dosage: 5 MG, QD
     Route: 065
     Dates: start: 20150313
  8. LILETTA [Concomitant]
     Active Substance: LEVONORGESTREL
  9. BACTROBAN [Concomitant]
     Active Substance: MUPIROCIN\MUPIROCIN CALCIUM
  10. LIDOCAINE. [Concomitant]
     Active Substance: LIDOCAINE
  11. DICLOFENAC [Concomitant]
     Active Substance: DICLOFENAC
  12. BACTRIM [Concomitant]
     Active Substance: SULFAMETHOXAZOLE\TRIMETHOPRIM
  13. LOSARTAN. [Concomitant]
     Active Substance: LOSARTAN
  14. ATIVAN [Concomitant]
     Active Substance: LORAZEPAM
  15. ACETAMINOPHEN. [Concomitant]
     Active Substance: ACETAMINOPHEN
  16. LEXAPRO [Concomitant]
     Active Substance: ESCITALOPRAM OXALATE
  17. EPIPEN [Concomitant]
     Active Substance: EPINEPHRINE
  18. TYVASO [Concomitant]
     Active Substance: TREPROSTINIL
  19. PRENATAL                           /00231801/ [Concomitant]
     Active Substance: VITAMINS

REACTIONS (2)
  - Nail bed infection [Not Recovered/Not Resolved]
  - Skin ulcer [Not Recovered/Not Resolved]
